FAERS Safety Report 11802257 (Version 1)
Quarter: 2015Q4

REPORT INFORMATION
  Report Type: Spontaneous
  Country: US (occurrence: None)
  Receive Date: 20151203
  Receipt Date: 20151203
  Transmission Date: 20160305
  Serious: Yes (Hospitalization)
  Sender: FDA-Public Use
  Company Number: None

PATIENT
  Sex: Female
  Weight: 83.6 kg

DRUGS (12)
  1. RIFAXIMIN [Concomitant]
     Active Substance: RIFAXIMIN
  2. FOLIC ACID. [Concomitant]
     Active Substance: FOLIC ACID
  3. SIMEPREVIR 150MG JANSSEN [Suspect]
     Active Substance: SIMEPREVIR
     Indication: HEPATITIS C
     Route: 048
     Dates: start: 20140704, end: 20140926
  4. PROAIR HFA [Concomitant]
     Active Substance: ALBUTEROL SULFATE
  5. ZINC [Concomitant]
     Active Substance: ZINC\ZINC CHLORIDE
  6. VITAMIN D [Concomitant]
     Active Substance: CHOLECALCIFEROL
  7. OMEPRAZOLE. [Concomitant]
     Active Substance: OMEPRAZOLE
  8. PROBIOTICS [Concomitant]
     Active Substance: PROBIOTICS NOS
  9. SOFOSBUVIR 400 MG GILEAD [Suspect]
     Active Substance: SOFOSBUVIR
     Indication: HEPATITIS C
     Route: 048
     Dates: start: 20140704, end: 20140926
  10. KENALOG [Concomitant]
     Active Substance: TRIAMCINOLONE ACETONIDE
  11. LACTULOSE. [Concomitant]
     Active Substance: LACTULOSE
  12. LEVOTHYROXINE. [Concomitant]
     Active Substance: LEVOTHYROXINE

REACTIONS (6)
  - Dyspnoea [None]
  - Viral infection [None]
  - Influenza like illness [None]
  - Confusional state [None]
  - Endocarditis [None]
  - Abdominal pain [None]

NARRATIVE: CASE EVENT DATE: 20140822
